FAERS Safety Report 5726144-X (Version None)
Quarter: 2008Q2

REPORT INFORMATION
  Report Type: 
  Country: None (occurrence: None)
  Receive Date: 20080502
  Receipt Date: 20080422
  Transmission Date: 20081010
  Serious: Yes (Hospitalization)
  Sender: FDA-Public Use
  Company Number: FR-WYE-G01091808

PATIENT
  Sex: Female

DRUGS (7)
  1. EFFEXOR [Suspect]
     Dosage: 75 MG STRENGTH; FREQUENCY UNSPECIFIED
     Route: 048
     Dates: start: 20070601, end: 20080115
  2. IOVERSOL [Suspect]
     Route: 042
     Dates: start: 20071220, end: 20071220
  3. DOLIPRANE [Concomitant]
     Dosage: UNKNOWN; ON REQUEST
     Route: 048
  4. TENORDATE [Concomitant]
     Dosage: UNKNOWN
     Route: 048
  5. NEXIUM [Concomitant]
     Dosage: 20 MG; FREQUENCY UNSPECIFIED
     Route: 048
  6. STRONTIUM RANELATE [Suspect]
     Dosage: 2 G DAILY; WITH SOME FORGETTING OF TAKING
     Route: 048
     Dates: start: 20070501, end: 20080115
  7. ASPIRIN [Concomitant]
     Dosage: 75 MG; FREQUENCY UNSPECIFIED
     Route: 048

REACTIONS (1)
  - URTICARIA [None]
